FAERS Safety Report 6044286-9 (Version None)
Quarter: 2009Q1

REPORT INFORMATION
  Report Type: 
  Country: None (occurrence: None)
  Receive Date: 20090120
  Receipt Date: 20090115
  Transmission Date: 20090719
  Serious: Yes (Other)
  Sender: FDA-Public Use
  Company Number: FR-ASTRAZENECA-2009CG00159

PATIENT
  Age: 30351 Day
  Sex: Female

DRUGS (17)
  1. MOPRAL [Suspect]
     Route: 048
     Dates: start: 20081203, end: 20081210
  2. RISPERDAL [Suspect]
     Route: 048
     Dates: start: 20081124, end: 20081210
  3. SERESTA [Concomitant]
  4. TIAPRIDAL [Concomitant]
  5. SOLUPRED [Concomitant]
     Dates: end: 20081203
  6. SOLUPRED [Concomitant]
     Dates: start: 20081203
  7. LASILIX [Concomitant]
  8. TRAMADOL HCL [Concomitant]
  9. SEROPLEX [Concomitant]
  10. CACIT D3 [Concomitant]
  11. SODIUM CHLORIDE [Concomitant]
     Dates: end: 20081203
  12. SODIUM CHLORIDE [Concomitant]
     Dates: start: 20081203
  13. VENTOLIN [Concomitant]
     Route: 055
  14. ATROVENT [Concomitant]
  15. FORLAX [Concomitant]
  16. FLUTICASONE PROPIONATE [Concomitant]
     Dates: end: 20081203
  17. FLUTICASONE PROPIONATE [Concomitant]
     Dates: start: 20081203

REACTIONS (2)
  - EYELID OEDEMA [None]
  - URTICARIA [None]
